FAERS Safety Report 8816031 (Version 1)
Quarter: 2012Q4

REPORT INFORMATION
  Report Type: 
  Country: US (occurrence: US)
  Receive Date: 20120928
  Receipt Date: 20120928
  Transmission Date: 20130627
  Serious: Yes (Hospitalization, Other)
  Sender: FDA-Public Use
  Company Number: US-PFIZER INC-2012239308

PATIENT
  Age: 53 Year
  Sex: Female
  Weight: 84.35 kg

DRUGS (1)
  1. NEURONTIN [Suspect]
     Indication: NEURALGIA
     Dosage: 300 mg, UNK

REACTIONS (3)
  - Hypoxia [Unknown]
  - Diabetes mellitus [Unknown]
  - Coronary artery occlusion [Unknown]
